FAERS Safety Report 17121363 (Version 1)
Quarter: 2019Q4

REPORT INFORMATION
  Report Type: Spontaneous
  Country: US (occurrence: US)
  Receive Date: 20191206
  Receipt Date: 20191206
  Transmission Date: 20200122
  Serious: No
  Sender: FDA-Public Use
  Company Number: US-MYLANLABS-2019M1115798

PATIENT
  Sex: Female
  Weight: 68 kg

DRUGS (1)
  1. ESTRADIOL. [Suspect]
     Active Substance: ESTRADIOL
     Indication: HORMONE REPLACEMENT THERAPY
     Dosage: TWICE WEEKLY
     Route: 062

REACTIONS (4)
  - Menopausal symptoms [Recovered/Resolved]
  - Vaginal haemorrhage [Recovered/Resolved]
  - Menorrhagia [Recovered/Resolved]
  - Drug ineffective [Recovered/Resolved]
